FAERS Safety Report 6084352-5 (Version None)
Quarter: 2009Q1

REPORT INFORMATION
  Report Type: 
  Country: None (occurrence: None)
  Receive Date: 20090219
  Receipt Date: 20090211
  Transmission Date: 20090719
  Serious: Yes (Hospitalization)
  Sender: FDA-Public Use
  Company Number: FR-ROCHE-608170

PATIENT
  Sex: Female
  Weight: 44 kg

DRUGS (5)
  1. CAPECITABINE [Suspect]
     Indication: GASTRIC CANCER
     Dosage: LAST DOSE PRIOR TO SAE:10 DEC 2008,THERAPY PERMANENTLY DISCONTINUED ON : 23 DEC 2008
     Route: 048
     Dates: start: 20081126, end: 20081223
  2. CISPLATIN [Suspect]
     Indication: GASTRIC CANCER
     Dosage: LAST DOSE PRIOR TO SAE : 26 NOV 2008
     Route: 042
     Dates: start: 20081126, end: 20081223
  3. ACTONEL [Concomitant]
  4. FENOFIBRATE [Concomitant]
  5. DOLIPRANE [Concomitant]

REACTIONS (1)
  - GENERAL PHYSICAL HEALTH DETERIORATION [None]
